FAERS Safety Report 9386845 (Version 1)
Quarter: 2013Q3

REPORT INFORMATION
  Report Type: Spontaneous
  Country: ZA (occurrence: ZA)
  Receive Date: 20130708
  Receipt Date: 20130708
  Transmission Date: 20140515
  Serious: Yes (Hospitalization)
  Sender: FDA-Public Use
  Company Number: ZA-ACCORD-018327

PATIENT
  Age: 69 Year
  Sex: Female
  Weight: 83 kg

DRUGS (5)
  1. PACLITAXEL [Suspect]
     Indication: BREAST CANCER
     Dosage: ON GOING
     Route: 042
     Dates: start: 20130405
  2. DEXAMETHASONE [Concomitant]
     Indication: PREMEDICATION
     Dosage: ON GOING
     Route: 042
     Dates: start: 20130405
  3. PHENERGAN [Concomitant]
     Indication: PREMEDICATION
     Dosage: ONGOING
     Route: 048
     Dates: start: 20130405
  4. ZOFER [Concomitant]
     Indication: PREMEDICATION
     Dosage: ON GOING
     Route: 042
     Dates: start: 20130405
  5. CIMETIDINE [Concomitant]
     Indication: PREMEDICATION
     Dosage: ON GOING
     Route: 042
     Dates: start: 20130405

REACTIONS (3)
  - Burning sensation [Recovered/Resolved]
  - Flushing [Unknown]
  - Dyspnoea [Unknown]
